FAERS Safety Report 20947360 (Version 2)
Quarter: 2022Q2

REPORT INFORMATION
  Report Type: Spontaneous
  Country: US (occurrence: US)
  Receive Date: 20220610
  Receipt Date: 20220630
  Transmission Date: 20220721
  Serious: No
  Sender: FDA-Public Use
  Company Number: US-IDORSIA-000515-2022-US

PATIENT
  Age: 48 Year
  Sex: Female

DRUGS (5)
  1. QUVIVIQ [Suspect]
     Active Substance: DARIDOREXANT
     Indication: Insomnia
     Dosage: 25 MG, 30 MINS BEFORE BEDTIME
     Route: 048
     Dates: start: 20220510, end: 20220522
  2. QUVIVIQ [Suspect]
     Active Substance: DARIDOREXANT
     Indication: Middle insomnia
     Dosage: 25 MG, 30 MINS BEFORE BEDTIME
     Route: 048
     Dates: start: 20220527, end: 20220530
  3. ATIVAN [Suspect]
     Active Substance: LORAZEPAM
     Indication: Product used for unknown indication
     Dosage: 0.5 MG, 5XDAY; 1.5 MG, AT BEDTIME
     Route: 048
     Dates: start: 202102
  4. LIOTHYRONINE SODIUM [Concomitant]
     Active Substance: LIOTHYRONINE SODIUM
     Dosage: 5MCG, QD
     Route: 048
     Dates: start: 2022
  5. LEVOTHYROXINE SODIUM [Concomitant]
     Active Substance: LEVOTHYROXINE SODIUM
     Indication: Insomnia
     Dosage: 50MCG, QD
     Route: 048
     Dates: start: 2018

REACTIONS (5)
  - Crying [Recovered/Resolved]
  - Snoring [Unknown]
  - Feeling abnormal [Unknown]
  - Hypnagogic hallucination [Recovered/Resolved]
  - Poor quality sleep [Recovered/Resolved]

NARRATIVE: CASE EVENT DATE: 20220501
